FAERS Safety Report 12081024 (Version 1)
Quarter: 2016Q1

REPORT INFORMATION
  Report Type: Spontaneous
  Country: US (occurrence: US)
  Receive Date: 20160216
  Receipt Date: 20160216
  Transmission Date: 20160526
  Serious: No
  Sender: FDA-Public Use
  Company Number: US-PFIZER INC-2016030031

PATIENT
  Age: 34 Year
  Sex: Male

DRUGS (2)
  1. TACROLIMUS. [Concomitant]
     Active Substance: TACROLIMUS
  2. RAPAMUNE [Suspect]
     Active Substance: SIROLIMUS
     Dosage: 0.4 MG/ML, DAILY
     Route: 048
     Dates: start: 20150918

REACTIONS (3)
  - Wrong technique in product usage process [Recovered/Resolved]
  - Multiple use of single-use product [Recovered/Resolved]
  - Candida infection [Recovered/Resolved]

NARRATIVE: CASE EVENT DATE: 20150918
